FAERS Safety Report 6498278-6 (Version None)
Quarter: 2009Q4

REPORT INFORMATION
  Report Type: 
  Country: None (occurrence: None)
  Receive Date: 20091215
  Receipt Date: 20091209
  Transmission Date: 20100525
  Serious: Yes (Other)
  Sender: FDA-Public Use
  Company Number: D0065448A

PATIENT
  Sex: Female

DRUGS (3)
  1. REQUIP [Suspect]
     Route: 048
  2. LAXATIVE [Suspect]
     Route: 065
  3. UNKNOWN DRUG [Suspect]
     Route: 065

REACTIONS (1)
  - CIRCULATORY COLLAPSE [None]
